FAERS Safety Report 7071399-5 (Version None)
Quarter: 2010Q4

REPORT INFORMATION
  Report Type: 
  Country: None (occurrence: None)
  Receive Date: 20101029
  Receipt Date: 20100825
  Transmission Date: 20110411
  Serious: No
  Sender: FDA-Public Use
  Company Number: A0756471A

PATIENT
  Sex: Male

DRUGS (8)
  1. ADVAIR DISKUS 100/50 [Suspect]
     Indication: EMPHYSEMA
     Dosage: 1PUFF SEE DOSAGE TEXT
     Route: 055
     Dates: start: 20081106
  2. ACETAMINOPHEN [Concomitant]
  3. HYDROCHLOROTHIAZIDE [Concomitant]
  4. ISOSORBIDE DINITRATE [Concomitant]
  5. METFORMIN [Concomitant]
  6. WARFARIN SODIUM [Concomitant]
  7. JANUVIA [Concomitant]
  8. SIMVASTATIN [Concomitant]

REACTIONS (4)
  - DRUG INEFFECTIVE [None]
  - DYSPNOEA [None]
  - HYPOTENSION [None]
  - INCORRECT DRUG ADMINISTRATION DURATION [None]
